FAERS Safety Report 17587509 (Version 1)
Quarter: 2020Q1

REPORT INFORMATION
  Report Type: Spontaneous
  Country: NL (occurrence: NL)
  Receive Date: 20200326
  Receipt Date: 20200326
  Transmission Date: 20200409
  Serious: Yes (Hospitalization, Other)
  Sender: FDA-Public Use
  Company Number: NL-FRESENIUS KABI-FK202002962

PATIENT
  Age: 61 Year
  Sex: Male

DRUGS (4)
  1. OXALIPLATIN (MANUFACTURER UNKNOWN) [Suspect]
     Active Substance: OXALIPLATIN
     Indication: METASTATIC GASTRIC CANCER
     Dosage: INFUSION, 1 MG / MG (MILLIGRAMS PER MILLIGRAM)
     Route: 065
     Dates: start: 20190919
  2. TRASTUZUMAB. [Suspect]
     Active Substance: TRASTUZUMAB
     Indication: METASTATIC GASTRIC CANCER
     Route: 065
     Dates: start: 20190919
  3. CISPLATIN. [Suspect]
     Active Substance: CISPLATIN
     Indication: METASTATIC GASTRIC CANCER
     Dosage: INFUSION, 1 MG / MG (MILLIGRAMS PER MILLIGRAM)
     Route: 065
     Dates: start: 20190919
  4. CAPECITABINE. [Suspect]
     Active Substance: CAPECITABINE
     Indication: METASTATIC GASTRIC CANCER
     Dosage: FILM-COATED TABLET, 500 MG (MILLIGRAMS), 2 TIMES A DAY, 4
     Route: 065
     Dates: start: 20190913

REACTIONS (1)
  - Toxic leukoencephalopathy [Unknown]

NARRATIVE: CASE EVENT DATE: 20191001
